FAERS Safety Report 8779998 (Version 1)
Quarter: 2012Q4

REPORT INFORMATION
  Report Type: 
  Country: US (occurrence: US)
  Receive Date: 20120912
  Receipt Date: 20120912
  Transmission Date: 20130627
  Serious: No
  Sender: FDA-Public Use
  Company Number: US-VERTEX PHARMACEUTICAL INC.-AE-2012-006442

PATIENT
  Age: 57 Year
  Sex: Female
  Weight: 79.91 kg

DRUGS (9)
  1. INCIVEK [Suspect]
     Indication: HEPATITIS C
     Route: 048
     Dates: start: 20120409
  2. RIBAVIRIN [Concomitant]
     Indication: HEPATITIS C
     Route: 048
     Dates: start: 20120409
  3. PEGASYS [Concomitant]
     Indication: HEPATITIS C
     Route: 058
     Dates: start: 20120409
  4. LORTABS [Concomitant]
  5. LORAZEPAM [Concomitant]
     Indication: ANXIETY
  6. PANTAPRAZOLE [Concomitant]
  7. PROMETHAZINE [Concomitant]
  8. SYNTHROID [Concomitant]
  9. METOPROLOL [Concomitant]

REACTIONS (11)
  - Depression [Unknown]
  - Chest pain [Unknown]
  - Influenza like illness [Not Recovered/Not Resolved]
  - Skin burning sensation [Unknown]
  - Mood swings [Not Recovered/Not Resolved]
  - Insomnia [Unknown]
  - Rash vesicular [Unknown]
  - Painful defaecation [Not Recovered/Not Resolved]
  - Diarrhoea [Not Recovered/Not Resolved]
  - Nausea [Recovered/Resolved]
  - Rash pruritic [Unknown]
